FAERS Safety Report 6503055-3 (Version None)
Quarter: 2009Q4

REPORT INFORMATION
  Report Type: 
  Country: None (occurrence: None)
  Receive Date: 20091217
  Receipt Date: 20091204
  Transmission Date: 20100525
  Serious: Yes (Death)
  Sender: FDA-Public Use
  Company Number: US-ROCHE-673018

PATIENT
  Age: 19 Year
  Sex: Male

DRUGS (4)
  1. ACCUTANE [Suspect]
     Route: 065
     Dates: start: 20070101
  2. ADDERALL 10 [Suspect]
     Route: 065
     Dates: start: 20070101
  3. PROZAC [Suspect]
     Indication: ANXIETY DISORDER
     Route: 065
     Dates: start: 20070101
  4. WELLBUTRIN [Suspect]
     Indication: DRUG USE FOR UNKNOWN INDICATION
     Route: 065
     Dates: start: 20070101

REACTIONS (5)
  - ANXIETY [None]
  - CHEST PAIN [None]
  - COMPLETED SUICIDE [None]
  - DEPRESSION [None]
  - NERVOUSNESS [None]
